FAERS Safety Report 9038898 (Version 1)
Quarter: 2013Q1

REPORT INFORMATION
  Report Type: Spontaneous
  Country: US (occurrence: None)
  Receive Date: 20130122
  Receipt Date: 20130122
  Transmission Date: 20140127
  Serious: No
  Sender: FDA-Public Use
  Company Number: None

PATIENT
  Age: 53 Year
  Sex: Male
  Weight: 70.76 kg

DRUGS (1)
  1. CREST PRO-HEATH [Suspect]
     Dosage: 2 TSP. 1X DAILY RINSE
     Dates: start: 201209, end: 201211

REACTIONS (1)
  - Tooth discolouration [None]
